FAERS Safety Report 9524163 (Version 1)
Quarter: 2013Q3

REPORT INFORMATION
  Report Type: Spontaneous
  Country: US (occurrence: None)
  Receive Date: 20130912
  Receipt Date: 20130912
  Transmission Date: 20140515
  Serious: Yes (Death)
  Sender: FDA-Public Use
  Company Number: 2013-US-000008

PATIENT
  Age: 93 Year
  Sex: Female

DRUGS (1)
  1. CLOZAPINE USP, ODT (CLOZAPINE, USP) TABLET [Suspect]
     Route: 048
     Dates: start: 20130213

REACTIONS (1)
  - Cardiac failure congestive [None]
